FAERS Safety Report 8772101 (Version 2)
Quarter: 2012Q4

REPORT INFORMATION
  Report Type: 
  Country: JP (occurrence: JP)
  Receive Date: 20120905
  Receipt Date: 20121221
  Transmission Date: 20130627
  Serious: Yes (Hospitalization)
  Sender: FDA-Public Use
  Company Number: JP-009507513-2012SP027553

PATIENT
  Age: 68 Year
  Sex: Female
  Weight: 55 kg

DRUGS (7)
  1. PEGINTRON POWDER FOR INJECTION 150MICROG [Suspect]
     Indication: CHRONIC HEPATITIS C
     Dosage: 1.5 Microgram per kilogram, qw
     Route: 058
     Dates: start: 20120314, end: 20120430
  2. REBETOL [Suspect]
     Indication: CHRONIC HEPATITIS C
     Dosage: 400 mg, qd
     Route: 048
     Dates: start: 20120314, end: 20120411
  3. REBETOL [Suspect]
     Dosage: 200 mg, qd
     Route: 048
     Dates: start: 20120412, end: 20120430
  4. TELAVIC [Suspect]
     Indication: CHRONIC HEPATITIS C
     Dosage: 1500 mg, qd
     Route: 048
     Dates: start: 20120314, end: 20120430
  5. GENTACIN [Concomitant]
     Dosage: 10 mg, PRN
     Route: 061
  6. PREDONINE [Concomitant]
     Dosage: 40 mg, QD
     Route: 042
  7. NAUZELIN [Concomitant]
     Dosage: 10 mg, PRN
     Route: 048

REACTIONS (1)
  - Rash [Recovered/Resolved]
